FAERS Safety Report 6154410-5 (Version None)
Quarter: 2009Q2

REPORT INFORMATION
  Report Type: 
  Country: None (occurrence: None)
  Receive Date: 20090410
  Receipt Date: 20090410
  Transmission Date: 20091009
  Serious: Yes (Hospitalization)
  Sender: FDA-Public Use
  Company Number: None

PATIENT
  Sex: Male
  Weight: 85 kg

DRUGS (4)
  1. FLUOROURACIL [Suspect]
     Dosage: 4000 MG
  2. BEVACIZUMAB (RHUMAB VEGF) [Suspect]
     Dosage: 1229 MG
  3. LEUCOVORIN CALCIUM [Suspect]
     Dosage: 4000 MG
  4. ELOXATIN [Suspect]
     Dosage: 818 MG

REACTIONS (7)
  - BRAIN STEM INFARCTION [None]
  - COGNITIVE DISORDER [None]
  - GRAND MAL CONVULSION [None]
  - HEADACHE [None]
  - MEMORY IMPAIRMENT [None]
  - STARING [None]
  - VISUAL IMPAIRMENT [None]
